FAERS Safety Report 12625789 (Version 1)
Quarter: 2016Q3

REPORT INFORMATION
  Report Type: Spontaneous
  Country: US (occurrence: US)
  Receive Date: 20160805
  Receipt Date: 20160805
  Transmission Date: 20161109
  Serious: No
  Sender: FDA-Public Use
  Company Number: US-ABBVIE-16P-163-1618711-00

PATIENT
  Age: 31 Year
  Sex: Male
  Weight: 101.24 kg

DRUGS (2)
  1. RIBASPHERE RIBAPAK [Concomitant]
     Active Substance: RIBAVIRIN
     Indication: PRODUCT USED FOR UNKNOWN INDICATION
     Route: 048
     Dates: start: 20160210
  2. VIEKIRA PAK [Suspect]
     Active Substance: DASABUVIR\OMBITASVIR\PARITAPREVIR\RITONAVIR
     Indication: CHRONIC HEPATITIS C
     Dosage: TAKE AS DIRECTED ON PACK
     Route: 048
     Dates: start: 20160214, end: 20160223

REACTIONS (2)
  - Pruritus [Unknown]
  - Chromaturia [Unknown]

NARRATIVE: CASE EVENT DATE: 20160223
